FAERS Safety Report 9908379 (Version 2)
Quarter: 2014Q2

REPORT INFORMATION
  Report Type: Spontaneous
  Country: GB (occurrence: GB)
  Receive Date: 20140219
  Receipt Date: 20140505
  Transmission Date: 20141212
  Serious: Yes (Other)
  Sender: FDA-Public Use
  Company Number: GB-JNJFOC-20140207471

PATIENT
  Age: 9 Year
  Sex: Male
  Weight: 23.3 kg

DRUGS (1)
  1. METHYLPHENIDATE [Suspect]
     Indication: ATTENTION DEFICIT/HYPERACTIVITY DISORDER
     Dosage: (5 MG IN THE MORNING AND 5 MG AT THE LUNCH TIME)
     Route: 048

REACTIONS (2)
  - Sinus arrhythmia [Recovered/Resolved]
  - Extrasystoles [Recovered/Resolved]
